FAERS Safety Report 14366579 (Version 1)
Quarter: 2018Q1

REPORT INFORMATION
  Report Type: Spontaneous
  Country: US (occurrence: US)
  Receive Date: 20180109
  Receipt Date: 20180109
  Transmission Date: 20180509
  Serious: No
  Sender: FDA-Public Use
  Company Number: US-MISSION PHARMACAL COMPANY-2039709

PATIENT
  Age: 27 Year
  Sex: Female

DRUGS (2)
  1. THIOLA [Suspect]
     Active Substance: TIOPRONIN
     Indication: CALCULUS URINARY
     Route: 065
     Dates: start: 20150812
  2. IRON [Concomitant]
     Active Substance: IRON
     Route: 065
     Dates: start: 20171229

REACTIONS (5)
  - Cyst [Unknown]
  - Drug ineffective [Unknown]
  - Haemorrhage [Unknown]
  - Blood count abnormal [Unknown]
  - Transfusion [Unknown]
